FAERS Safety Report 7934528-4 (Version None)
Quarter: 2011Q4

REPORT INFORMATION
  Report Type: 
  Country: None (occurrence: None)
  Receive Date: 20111122
  Receipt Date: 20111111
  Transmission Date: 20120403
  Serious: Yes (Death)
  Sender: FDA-Public Use
  Company Number: US-ROCHE-1010354

PATIENT
  Sex: Female

DRUGS (6)
  1. VALCYTE [Suspect]
     Indication: CYTOMEGALOVIRUS INFECTION
  2. PROGRAF [Concomitant]
  3. COUMADIN [Concomitant]
     Indication: HEPATIC ARTERY STENOSIS
  4. PREDNISONE TAB [Concomitant]
     Indication: LIVER TRANSPLANT
  5. CELLCEPT [Concomitant]
     Indication: TRANSPLANT
  6. ACTIGALL [Concomitant]

REACTIONS (1)
  - DEATH [None]
